FAERS Safety Report 11156412 (Version 1)
Quarter: 2015Q2

REPORT INFORMATION
  Report Type: Spontaneous
  Country: DE (occurrence: DE)
  Receive Date: 20150602
  Receipt Date: 20150602
  Transmission Date: 20150821
  Serious: Yes (Hospitalization)
  Sender: FDA-Public Use
  Company Number: DE-GILEAD-2015-0149472

PATIENT
  Age: 50 Year
  Sex: Male
  Weight: 182 kg

DRUGS (4)
  1. ZYDELIG [Suspect]
     Active Substance: IDELALISIB
     Dosage: 150 MG, BID
     Route: 048
     Dates: start: 20150429
  2. MARCUMAR [Concomitant]
     Active Substance: PHENPROCOUMON
     Indication: DEEP VEIN THROMBOSIS
     Dosage: UNK
     Route: 048
     Dates: start: 200810
  3. ZYDELIG [Suspect]
     Active Substance: IDELALISIB
     Indication: B-CELL LYMPHOMA
     Dosage: 150 MG, BID
     Route: 048
     Dates: start: 201410, end: 20150416
  4. AMPHO MORONAL [Concomitant]
     Indication: ORAL CANDIDIASIS
     Dosage: UNK, TID
     Dates: start: 201504

REACTIONS (1)
  - Vertigo positional [Unknown]

NARRATIVE: CASE EVENT DATE: 201410
